FAERS Safety Report 4602612-9 (Version None)
Quarter: 2005Q1

REPORT INFORMATION
  Report Type: 
  Country: None (occurrence: None)
  Receive Date: 20050307
  Receipt Date: 20050223
  Transmission Date: 20050727
  Serious: Yes (Hospitalization, Other)
  Sender: FDA-Public Use
  Company Number: 01/ 00641-USE

PATIENT
  Age: 45 Year
  Sex: Female
  Weight: 68 kg

DRUGS (14)
  1. BETASERON [Suspect]
     Indication: RELAPSING-REMITTING MULTIPLE SCLEROSIS
     Dosage: 4 MIU, EVERY 2D, SUBCUTANEOUS; 8 MIU, EVERY 2D, SUBCUTANEOUS
     Route: 058
     Dates: start: 20001101, end: 20010201
  2. BETASERON [Suspect]
     Indication: RELAPSING-REMITTING MULTIPLE SCLEROSIS
     Dosage: 4 MIU, EVERY 2D, SUBCUTANEOUS; 8 MIU, EVERY 2D, SUBCUTANEOUS
     Route: 058
     Dates: start: 20001101, end: 20010201
  3. PREVACID [Concomitant]
  4. AVONEX [Concomitant]
  5. NEURONTIN [Concomitant]
  6. KLONOPIN [Concomitant]
  7. REMERON [Concomitant]
  8. DETROL [Concomitant]
  9. PROVIGIL [Concomitant]
  10. PROMETRIUM [Concomitant]
  11. ZYBAN [Concomitant]
  12. PROZAC [Concomitant]
  13. SOLU-MEDROL [Concomitant]
  14. VICODIN [Concomitant]

REACTIONS (8)
  - DRUG INEFFECTIVE [None]
  - INJECTION SITE ABSCESS [None]
  - INJECTION SITE CELLULITIS [None]
  - INJECTION SITE ERYTHEMA [None]
  - INJECTION SITE INFECTION [None]
  - INJECTION SITE REACTION [None]
  - INJECTION SITE SCAR [None]
  - INJECTION SITE SWELLING [None]
